FAERS Safety Report 7322488-9 (Version None)
Quarter: 2011Q1

REPORT INFORMATION
  Report Type: 
  Country: None (occurrence: None)
  Receive Date: 20110215
  Receipt Date: 20110131
  Transmission Date: 20110831
  Serious: Yes (Other)
  Sender: FDA-Public Use
  Company Number: 2010004979

PATIENT
  Age: 50 Year
  Sex: Female
  Weight: 49 kg

DRUGS (8)
  1. DECADRON [Concomitant]
  2. GASPORT [Concomitant]
  3. TARCEVA [Suspect]
     Indication: NON-SMALL CELL LUNG CANCER
     Dosage: SEE IMAGE
     Route: 048
     Dates: start: 20100930, end: 20101001
  4. TARCEVA [Suspect]
     Indication: NON-SMALL CELL LUNG CANCER
     Dosage: SEE IMAGE
     Route: 048
     Dates: start: 20100917, end: 20100929
  5. TARCEVA [Suspect]
     Indication: NON-SMALL CELL LUNG CANCER
     Dosage: SEE IMAGE
     Route: 048
     Dates: start: 20101002
  6. TARCEVA [Suspect]
     Indication: NON-SMALL CELL LUNG CANCER
     Dosage: SEE IMAGE
     Route: 048
     Dates: start: 20100912, end: 20100913
  7. TARCEVA [Suspect]
     Indication: NON-SMALL CELL LUNG CANCER
     Dosage: SEE IMAGE
     Route: 048
     Dates: start: 20100914, end: 20100916
  8. PRIMEPAN [Concomitant]

REACTIONS (7)
  - OPTIC NEURITIS [None]
  - HEADACHE [None]
  - ENCEPHALOPATHY [None]
  - ABDOMINAL DISCOMFORT [None]
  - NAUSEA [None]
  - SCOTOMA [None]
  - CONVULSION [None]
